FAERS Safety Report 6060132-1 (Version None)
Quarter: 2009Q1

REPORT INFORMATION
  Report Type: 
  Country: None (occurrence: None)
  Receive Date: 20090128
  Receipt Date: 20090119
  Transmission Date: 20090719
  Serious: Yes (Hospitalization)
  Sender: FDA-Public Use
  Company Number: DSA_33110_2009

PATIENT
  Age: 73 Year
  Sex: Female

DRUGS (4)
  1. ENALAPRIL MALEATE [Suspect]
     Indication: HYPERTENSION
     Dosage: (20 MG QD ORAL)
     Route: 048
     Dates: start: 20040928, end: 20041006
  2. GLUCOBAY [Concomitant]
  3. ADIRO [Concomitant]
  4. CARDYL [Concomitant]

REACTIONS (2)
  - HYPOALDOSTERONISM [None]
  - HYPONATRAEMIA [None]
